FAERS Safety Report 9963297 (Version 1)
Quarter: 2014Q1

REPORT INFORMATION
  Report Type: Report from Study
  Country: IT (occurrence: IT)
  Receive Date: 20140305
  Receipt Date: 20140305
  Transmission Date: 20141002
  Serious: Yes (Death)
  Sender: FDA-Public Use
  Company Number: IT-BAXTER-2014BAX011360

PATIENT
  Sex: 0

DRUGS (4)
  1. HOLOXAN [Suspect]
     Indication: SARCOMA
     Dosage: 3 G/M2 OVER 1 HOUR FOR 3 CONSECUTIVE DAYS
  2. EPIRUBICIN [Suspect]
     Indication: SARCOMA
     Dosage: DAYS 1 AND 2
     Route: 042
  3. MESNA [Suspect]
     Indication: SARCOMA
     Dosage: 3 G/M2
     Route: 040
  4. GRANULOCYTE COLONY-STIMULATING FACTOR NOS [Suspect]
     Indication: SARCOMA
     Dosage: 300 UG DAY +8 UNTIL RECOVERY
     Route: 058

REACTIONS (1)
  - Disease progression [Fatal]
